FAERS Safety Report 20442250 (Version 1)
Quarter: 2022Q1

REPORT INFORMATION
  Report Type: Spontaneous
  Country: GB (occurrence: GB)
  Receive Date: 20220208
  Receipt Date: 20220208
  Transmission Date: 20220423
  Serious: Yes (Hospitalization, Other)
  Sender: FDA-Public Use
  Company Number: None

PATIENT
  Age: 49 Year
  Sex: Female

DRUGS (1)
  1. METHOTREXATE [Suspect]
     Active Substance: METHOTREXATE
     Indication: Product used for unknown indication

REACTIONS (6)
  - Mucosal inflammation [Unknown]
  - Inappropriate schedule of product administration [Unknown]
  - Mouth ulceration [Unknown]
  - Vaginal ulceration [Unknown]
  - Skin ulcer [Unknown]
  - Pain [Unknown]
